FAERS Safety Report 17957172 (Version 1)
Quarter: 2020Q2

REPORT INFORMATION
  Report Type: Spontaneous
  Country: US (occurrence: US)
  Receive Date: 20200629
  Receipt Date: 20200629
  Transmission Date: 20200714
  Serious: Yes (Other)
  Sender: FDA-Public Use
  Company Number: US-GLAXOSMITHKLINE-US2020111501

PATIENT
  Age: 20 Year
  Sex: Male

DRUGS (2)
  1. LAMICTAL [Suspect]
     Active Substance: LAMOTRIGINE
     Dosage: 50 MG, BID
     Route: 048
     Dates: start: 2005
  2. LAMICTAL [Suspect]
     Active Substance: LAMOTRIGINE
     Indication: SEIZURE
     Dosage: 200 MG, BID
     Route: 048
     Dates: start: 2005

REACTIONS (8)
  - Fungal oesophagitis [Unknown]
  - Blepharitis [Not Recovered/Not Resolved]
  - Gastric disorder [Not Recovered/Not Resolved]
  - Oesophageal pain [Unknown]
  - Malaise [Unknown]
  - Abdominal pain upper [Unknown]
  - Gastritis erosive [Unknown]
  - Seizure [Unknown]

NARRATIVE: CASE EVENT DATE: 20200624
